FAERS Safety Report 12709119 (Version 3)
Quarter: 2016Q4

REPORT INFORMATION
  Report Type: Report from Study
  Country: None (occurrence: CO)
  Receive Date: 20160901
  Receipt Date: 20161128
  Transmission Date: 20170207
  Serious: Yes (Other)
  Sender: FDA-Public Use
  Company Number: CO-ABBVIE-16K-036-1715425-00

PATIENT
  Age: 14 Year
  Sex: Female
  Weight: 47 kg

DRUGS (2)
  1. METHOTREXATE. [Concomitant]
     Active Substance: METHOTREXATE
     Indication: PRODUCT USED FOR UNKNOWN INDICATION
  2. HUMIRA [Suspect]
     Active Substance: ADALIMUMAB
     Indication: JUVENILE IDIOPATHIC ARTHRITIS
     Route: 058
     Dates: start: 20140424, end: 20160619

REACTIONS (2)
  - Ocular hypertension [Recovering/Resolving]
  - Surgical failure [Unknown]

NARRATIVE: CASE EVENT DATE: 20160721
